FAERS Safety Report 21875587 (Version 1)
Quarter: 2023Q1

REPORT INFORMATION
  Report Type: Report from Study
  Country: US (occurrence: US)
  Receive Date: 20230118
  Receipt Date: 20230118
  Transmission Date: 20230417
  Serious: Yes (Other)
  Sender: FDA-Public Use
  Company Number: US-ABBVIE-4273146

PATIENT
  Sex: Female

DRUGS (1)
  1. RINVOQ [Suspect]
     Active Substance: UPADACITINIB
     Indication: Dermatitis atopic
     Route: 048

REACTIONS (3)
  - Lung neoplasm malignant [Not Recovered/Not Resolved]
  - Rash pruritic [Not Recovered/Not Resolved]
  - Osteoporosis [Not Recovered/Not Resolved]
